FAERS Safety Report 11251981 (Version 1)
Quarter: 2015Q3

REPORT INFORMATION
  Report Type: Spontaneous
  Country: US (occurrence: US)
  Receive Date: 20150708
  Receipt Date: 20150708
  Transmission Date: 20151125
  Serious: No
  Sender: FDA-Public Use
  Company Number: US-ELI_LILLY_AND_COMPANY-US201211006671

PATIENT
  Age: 79 Year
  Sex: Female
  Weight: 86.17 kg

DRUGS (1)
  1. AMYVID [Suspect]
     Active Substance: FLORBETAPIR F-18
     Indication: MEMORY IMPAIRMENT
     Dosage: 10.9 MCI, UNKNOWN
     Route: 042
     Dates: start: 20121115

REACTIONS (1)
  - Infusion site pain [Recovered/Resolved]

NARRATIVE: CASE EVENT DATE: 20121115
